FAERS Safety Report 25251592 (Version 1)
Quarter: 2025Q2

REPORT INFORMATION
  Report Type: Spontaneous
  Country: US (occurrence: US)
  Receive Date: 20250429
  Receipt Date: 20250429
  Transmission Date: 20250716
  Serious: Yes (Death, Hospitalization, Other)
  Sender: EXELA PHARMA SCIENCES
  Company Number: US-EXELAPHARMA-2025EXLA00055

PATIENT
  Age: 49 Year
  Sex: Female

DRUGS (1)
  1. FENTANYL CITRATE [Suspect]
     Active Substance: FENTANYL CITRATE
     Indication: Drug abuse

REACTIONS (5)
  - Brain oedema [Fatal]
  - Toxic leukoencephalopathy [Fatal]
  - Death [Fatal]
  - Drug abuse [Fatal]
  - Incorrect route of product administration [Unknown]
